FAERS Safety Report 8598219-1 (Version None)
Quarter: 2012Q3

REPORT INFORMATION
  Report Type: 
  Country: None (occurrence: None)
  Receive Date: 20120816
  Receipt Date: 20120808
  Transmission Date: 20120928
  Serious: Yes (Death, Life-Threatening, Hospitalization)
  Sender: FDA-Public Use
  Company Number: ES-CELGENEUS-144-21880-12080973

PATIENT
  Sex: Female

DRUGS (5)
  1. DEXAMETHASONE [Concomitant]
     Route: 065
     Dates: start: 20120402
  2. VELCADE [Concomitant]
     Indication: MULTIPLE MYELOMA
     Route: 065
  3. REVLIMID [Suspect]
     Indication: MULTIPLE MYELOMA
     Route: 048
     Dates: start: 20120206, end: 20120226
  4. REVLIMID [Suspect]
     Route: 048
     Dates: start: 20120402
  5. DEXAMETHASONE [Concomitant]
     Indication: MULTIPLE MYELOMA
     Route: 065
     Dates: start: 20120206, end: 20120226

REACTIONS (5)
  - THROMBOCYTOPENIA [None]
  - MULTI-ORGAN FAILURE [None]
  - SEPSIS [None]
  - NEUTROPENIA [None]
  - ANAEMIA [None]
